FAERS Safety Report 8776020 (Version 1)
Quarter: 2012Q4

REPORT INFORMATION
  Report Type: Report from Study
  Country: US (occurrence: US)
  Receive Date: 20120910
  Receipt Date: 20120910
  Transmission Date: 20130627
  Serious: Yes (Hospitalization)
  Sender: FDA-Public Use
  Company Number: US-BRISTOL-MYERS SQUIBB COMPANY-16916553

PATIENT
  Age: 67 Year
  Sex: Female
  Weight: 105 kg

DRUGS (3)
  1. SPRYCEL [Suspect]
     Indication: ENDOMETRIAL CANCER
     Dosage: Last dose:05Aug2012
     Route: 048
     Dates: start: 20120215
  2. CARBOPLATIN [Suspect]
     Indication: ENDOMETRIAL CANCER
     Dosage: Last dose:10Jul2012
     Route: 042
     Dates: start: 20120215
  3. TAXOL [Suspect]
     Indication: ENDOMETRIAL CANCER
     Dosage: Last dose:10Jul2012
     Route: 042
     Dates: start: 20120215

REACTIONS (3)
  - Confusional state [Recovered/Resolved]
  - Dehydration [Recovered/Resolved]
  - Urinary tract infection [Not Recovered/Not Resolved]
